FAERS Safety Report 25207587 (Version 1)
Quarter: 2025Q2

REPORT INFORMATION
  Report Type: Report from Study
  Country: EG (occurrence: EG)
  Receive Date: 20250417
  Receipt Date: 20250417
  Transmission Date: 20250716
  Serious: No
  Sender: SANDOZ
  Company Number: EG-SANDOZ-SDZ2025EG023629

PATIENT
  Sex: Female

DRUGS (1)
  1. OMNITROPE [Suspect]
     Active Substance: SOMATROPIN
     Indication: Turner^s syndrome
     Route: 058
     Dates: start: 202301

REACTIONS (4)
  - Drug ineffective [Unknown]
  - Incorrect dose administered by device [Unknown]
  - Expired device used [Unknown]
  - Device mechanical issue [Unknown]
